FAERS Safety Report 11271217 (Version 7)
Quarter: 2015Q3

REPORT INFORMATION
  Report Type: Report from Study
  Country: CH (occurrence: CH)
  Receive Date: 20150714
  Receipt Date: 20150828
  Transmission Date: 20151125
  Serious: Yes (Hospitalization, Other)
  Sender: FDA-Public Use
  Company Number: CH-ABBVIE-15P-151-1419645-00

PATIENT
  Age: 69 Year
  Sex: Female

DRUGS (4)
  1. CITALOPRAM [Concomitant]
     Active Substance: CITALOPRAM HYDROBROMIDE
     Indication: PRODUCT USED FOR UNKNOWN INDICATION
  2. DUODOPA [Suspect]
     Active Substance: CARBIDOPA\LEVODOPA
     Dosage: 1.5 TO 4.5 ML/H
     Route: 050
     Dates: start: 20150625, end: 20150811
  3. DUODOPA [Suspect]
     Active Substance: CARBIDOPA\LEVODOPA
     Indication: PARKINSON^S DISEASE
     Dosage: MORNING DOSE: 2.5ML,CONTINUOUS DOSE: 3.0ML/H,EXTRA DOSE: 1.0ML }16H THERAPY
     Route: 050
     Dates: start: 20150625, end: 20150625
  4. TRANXILIUM [Concomitant]
     Active Substance: CLORAZEPATE DIPOTASSIUM
     Indication: PRODUCT USED FOR UNKNOWN INDICATION

REACTIONS (15)
  - Pulmonary embolism [Recovered/Resolved]
  - Pneumonia aspiration [Recovered/Resolved]
  - Syncope [Recovered/Resolved]
  - Syncope [Unknown]
  - Confusional state [Recovered/Resolved]
  - Confusional state [Unknown]
  - Loss of consciousness [Recovered/Resolved]
  - Unintentional medical device removal [Recovered/Resolved]
  - Device occlusion [Recovered/Resolved]
  - Loss of consciousness [Unknown]
  - Therapy cessation [Recovered/Resolved]
  - Hypokalaemia [Recovered/Resolved]
  - Pain [Unknown]
  - Unintentional medical device removal [Recovered/Resolved]
  - Dystonia [Unknown]

NARRATIVE: CASE EVENT DATE: 20150625
